FAERS Safety Report 9963550 (Version 1)
Quarter: 2014Q1

REPORT INFORMATION
  Report Type: Report from Study
  Country: US (occurrence: US)
  Receive Date: 20140305
  Receipt Date: 20140305
  Transmission Date: 20141002
  Serious: No
  Sender: FDA-Public Use
  Company Number: US-ABBVIE-13P-163-1117096-00

PATIENT
  Sex: Female

DRUGS (11)
  1. HUMIRA [Suspect]
     Indication: CROHN^S DISEASE
  2. ZEMPLAR [Concomitant]
     Indication: RENAL FAILURE CHRONIC
  3. SENSIPAR [Concomitant]
     Indication: RENAL FAILURE CHRONIC
  4. SODIUM BICARBONATE [Concomitant]
     Indication: RENAL FAILURE CHRONIC
  5. LOSARTAN [Concomitant]
     Indication: HYPERTENSION
  6. LEVOTHYROXINE [Concomitant]
     Indication: HYPOTHYROIDISM
  7. IMATRAMINE [Concomitant]
     Indication: STRESS URINARY INCONTINENCE
  8. BABY ASPIRIN [Concomitant]
     Indication: PRODUCT USED FOR UNKNOWN INDICATION
  9. FISH OIL [Concomitant]
     Indication: PRODUCT USED FOR UNKNOWN INDICATION
  10. MELATONIN [Concomitant]
     Indication: INSOMNIA
     Dosage: EVERY PM
  11. IRON [Concomitant]
     Indication: ANAEMIA

REACTIONS (1)
  - Injection site pain [Not Recovered/Not Resolved]
